FAERS Safety Report 5971832-3 (Version None)
Quarter: 2008Q4

REPORT INFORMATION
  Report Type: 
  Country: None (occurrence: None)
  Receive Date: 20081201
  Receipt Date: 20080107
  Transmission Date: 20090506
  Serious: No
  Sender: FDA-Public Use
  Company Number: US-AMGEN-KDL259404

PATIENT
  Sex: Female

DRUGS (2)
  1. ENBREL [Suspect]
     Indication: PSORIATIC ARTHROPATHY
     Route: 058
     Dates: start: 20070601
  2. ENBREL [Suspect]
     Indication: PSORIASIS

REACTIONS (9)
  - ANGER [None]
  - ARTHRALGIA [None]
  - DIZZINESS [None]
  - HYPERHIDROSIS [None]
  - INSOMNIA [None]
  - IRRITABILITY [None]
  - POLLAKIURIA [None]
  - PSORIATIC ARTHROPATHY [None]
  - TOOTH ABSCESS [None]
